FAERS Safety Report 8044653-8 (Version None)
Quarter: 2012Q1

REPORT INFORMATION
  Report Type: 
  Country: None (occurrence: None)
  Receive Date: 20120113
  Receipt Date: 20120112
  Transmission Date: 20120608
  Serious: Yes (Hospitalization, Disabling, Other)
  Sender: FDA-Public Use
  Company Number: US-JNJFOC-20091103983

PATIENT
  Sex: Female

DRUGS (4)
  1. SUDAFED 24 HOUR [Suspect]
     Indication: NASOPHARYNGITIS
     Dosage: 5 DAYS
     Dates: start: 20081201
  2. HIGH BLOOD PRESSURE MEDICATION NOS [Concomitant]
     Indication: HYPERTENSION
  3. SUDAFED 24 HOUR [Suspect]
  4. MANY OTHER UNSPECIFIED MEDICATIONS [Concomitant]
     Indication: PRODUCT USED FOR UNKNOWN INDICATION
     Route: 065

REACTIONS (5)
  - WHEELCHAIR USER [None]
  - CEREBROVASCULAR ACCIDENT [None]
  - ACTIVITIES OF DAILY LIVING IMPAIRED [None]
  - DRUG PRESCRIBING ERROR [None]
  - INCONTINENCE [None]
